FAERS Safety Report 24026939 (Version 2)
Quarter: 2024Q3

REPORT INFORMATION
  Report Type: Spontaneous
  Country: US (occurrence: US)
  Receive Date: 20240628
  Receipt Date: 20240906
  Transmission Date: 20241016
  Serious: No
  Sender: ROCHE
  Company Number: US-ROCHE-3567486

PATIENT
  Age: 53 Year
  Sex: Male

DRUGS (2)
  1. ALECENSA [Suspect]
     Active Substance: ALECTINIB HYDROCHLORIDE
     Indication: Metastases to lung
     Route: 048
  2. ALECENSA [Suspect]
     Active Substance: ALECTINIB HYDROCHLORIDE
     Route: 048

REACTIONS (4)
  - Constipation [Unknown]
  - Fatigue [Unknown]
  - Pain [Unknown]
  - Asthenia [Unknown]
